FAERS Safety Report 14849536 (Version 2)
Quarter: 2018Q2

REPORT INFORMATION
  Report Type: Report from Study
  Country: US (occurrence: US)
  Receive Date: 20180504
  Receipt Date: 20180518
  Transmission Date: 20180711
  Serious: Yes (Hospitalization)
  Sender: FDA-Public Use
  Company Number: US-PFIZER INC-2018177590

PATIENT
  Age: 68 Year
  Sex: Male
  Weight: 68 kg

DRUGS (52)
  1. CYTARABINE. [Suspect]
     Active Substance: CYTARABINE
     Indication: ACUTE MYELOID LEUKAEMIA
     Dosage: 20 MG/M2, DAYS 1-10 OF ALL CYCLES. CYCLE LENGTH= 28 DAYS.
     Route: 058
     Dates: start: 20170309, end: 20171119
  2. LITHIUM. [Concomitant]
     Active Substance: LITHIUM
     Indication: BIPOLAR DISORDER
     Dosage: 300 MG, 1 IN 1 D
     Route: 048
     Dates: start: 201501
  3. PROTONIX /00661201/ [Concomitant]
     Active Substance: OMEPRAZOLE
     Indication: GASTROOESOPHAGEAL REFLUX DISEASE
     Dosage: 40 MG, 1 IN 1 D
     Route: 048
     Dates: start: 1998
  4. PROTONIX /00661201/ [Concomitant]
     Active Substance: OMEPRAZOLE
     Dosage: 40 MG, QAM (1 IN 1 D)
     Route: 048
     Dates: start: 20170921, end: 20170926
  5. OXYCODONE [Concomitant]
     Active Substance: OXYCODONE
     Indication: BACK PAIN
     Dosage: 5 MG, Q4H PRN
     Route: 048
     Dates: start: 20170329
  6. BIOTENE /03475601/ [Concomitant]
     Indication: DRY MOUTH
     Dosage: 1 DOSAGE FORMS, AS REQUIRED
     Route: 061
     Dates: start: 20170208
  7. LORATADINE. [Concomitant]
     Active Substance: LORATADINE
     Indication: RHINORRHOEA
     Dosage: 5 MG, QAM (5 MG, 1 IN 1 D)
     Route: 048
     Dates: start: 20170329
  8. PANTOPRAZOLE [Concomitant]
     Active Substance: PANTOPRAZOLE
     Indication: GASTROOESOPHAGEAL REFLUX DISEASE
     Dosage: 40 MG, 1 IN 1 D
     Route: 048
     Dates: start: 20180225
  9. ALLOPURINOL. [Concomitant]
     Active Substance: ALLOPURINOL
     Indication: PROPHYLAXIS
     Dosage: 300 MG, 1 IN 1 D
     Route: 048
     Dates: start: 20170308, end: 20170322
  10. TRAZODONE [Concomitant]
     Active Substance: TRAZODONE HYDROCHLORIDE
     Indication: INSOMNIA
     Dosage: 100 MG, 1 IN 1 D
     Route: 048
     Dates: start: 20170304, end: 20170429
  11. TRAZODONE [Concomitant]
     Active Substance: TRAZODONE HYDROCHLORIDE
     Dosage: 150 MG, QHS, 1 IN 1 D
     Route: 048
     Dates: start: 20170430
  12. POTASSIUM CHLORIDE. [Concomitant]
     Active Substance: POTASSIUM CHLORIDE
     Indication: HYPOKALAEMIA
     Dosage: 40 MILLIEQUIVALENTS, AS REQUIRED
     Route: 048
     Dates: start: 20170309
  13. POTASSIUM CHLORIDE. [Concomitant]
     Active Substance: POTASSIUM CHLORIDE
     Indication: SUPPLEMENTATION THERAPY
  14. BENADRYL [Concomitant]
     Active Substance: DIPHENHYDRAMINE HYDROCHLORIDE
     Indication: PREMEDICATION
     Dosage: 25 MG, AS REQUIRED
     Route: 048
     Dates: start: 20170313
  15. PREDNISONE. [Concomitant]
     Active Substance: PREDNISONE
     Indication: ARTHRALGIA
  16. HYDROCORTISONE. [Concomitant]
     Active Substance: HYDROCORTISONE
     Indication: RASH MACULO-PAPULAR
     Dosage: 1 %, AS REQUIRED
     Route: 061
     Dates: start: 20170430
  17. DICLOFENAC [Concomitant]
     Active Substance: DICLOFENAC
     Indication: ARTHRALGIA
     Dosage: 2 GM, 2 IN 1 D
     Route: 061
     Dates: start: 20180221
  18. ALLOPURINOL. [Concomitant]
     Active Substance: ALLOPURINOL
     Dosage: 300 MG, 1 IN 1 D
     Route: 048
     Dates: start: 20170622, end: 20170829
  19. TYLENOL [Concomitant]
     Active Substance: ACETAMINOPHEN
     Indication: TRANSFUSION
     Dosage: 650 MG, AS REQUIRED
     Route: 048
     Dates: start: 20170310
  20. LAMOTRIGINE. [Concomitant]
     Active Substance: LAMOTRIGINE
     Indication: BIPOLAR DISORDER
     Dosage: 100 MG, 1 IN 1 D
     Route: 048
     Dates: start: 199801
  21. LAMOTRIGINE. [Concomitant]
     Active Substance: LAMOTRIGINE
     Dosage: 1 IN 1 D
     Route: 048
     Dates: start: 20170304, end: 20170322
  22. PREDNISONE. [Concomitant]
     Active Substance: PREDNISONE
     Indication: SYSTEMIC LUPUS ERYTHEMATOSUS
     Dosage: 5-20 MG, AS NEEDED (1 AS REQUIRED)
     Route: 048
     Dates: start: 2015
  23. PREDNISONE. [Concomitant]
     Active Substance: PREDNISONE
     Indication: ARTHRITIS
  24. LOPERAMIDE HCL [Concomitant]
     Active Substance: LOPERAMIDE HYDROCHLORIDE
     Indication: DIARRHOEA
     Dosage: QID PRN (2 MG, AS REQUIRED)
     Route: 048
     Dates: start: 20170308
  25. CETIRIZINE [Concomitant]
     Active Substance: CETIRIZINE HYDROCHLORIDE
     Indication: EPISTAXIS
     Dosage: 5 MG, 1 IN 1 D
     Route: 048
     Dates: start: 201704
  26. TAMIFLU [Concomitant]
     Active Substance: OSELTAMIVIR PHOSPHATE
     Indication: PROPHYLAXIS
     Dosage: 75 MG, 2 IN 1 D
     Route: 048
     Dates: start: 20180127, end: 20180129
  27. MIRALAX [Concomitant]
     Active Substance: POLYETHYLENE GLYCOL 3350
     Indication: CONSTIPATION
     Dosage: 17 G, QD PRN
     Route: 048
     Dates: start: 20180220
  28. VENETOCLAX. [Suspect]
     Active Substance: VENETOCLAX
     Dosage: 400 MG, QD FOR 3 WEEKS THEN OFF A WEEK. CYCLE LENGTH = 28 DAYS (400 MG,1 IN 1 D)
     Route: 048
     Dates: start: 20170311, end: 20170311
  29. VENETOCLAX. [Suspect]
     Active Substance: VENETOCLAX
     Dosage: 600 MG, QD FOR 3 WEEKS THEN OFF A WEEK. CYCLE LENGTH = 28 DAYS (600 MG,1 IN 1 D)
     Route: 048
     Dates: start: 20170312, end: 20180302
  30. TYLENOL [Concomitant]
     Active Substance: ACETAMINOPHEN
     Indication: ARTHRALGIA
  31. PROTONIX /00661201/ [Concomitant]
     Active Substance: OMEPRAZOLE
     Dosage: 40 MG, 1 IN 12 HR
     Route: 042
     Dates: start: 20170321, end: 20170324
  32. TRAMADOL. [Concomitant]
     Active Substance: TRAMADOL
     Indication: ARTHRALGIA
     Dosage: 50 MG, Q8H PRN (50 MG, AS REQUIRED)
     Route: 048
     Dates: start: 20170710
  33. CETIRIZINE [Concomitant]
     Active Substance: CETIRIZINE HYDROCHLORIDE
     Indication: NASAL CONGESTION
  34. VENETOCLAX. [Suspect]
     Active Substance: VENETOCLAX
     Indication: ACUTE MYELOID LEUKAEMIA
     Dosage: 100 MG, QD FOR 3 WEEKS THEN OFF A WEEK. CYCLE LENGTH = 28 DAYS (100 MG,1 IN 1 D)
     Route: 048
     Dates: start: 20170309, end: 20170309
  35. VENETOCLAX. [Suspect]
     Active Substance: VENETOCLAX
     Dosage: 200 MG, QD FOR 3 WEEKS THEN OFF A WEEK. CYCLE LENGTH = 28 DAYS (200 MG,1 IN 1 D)
     Route: 048
     Dates: start: 20170310, end: 20170310
  36. HYCODAN /00060002/ [Concomitant]
     Active Substance: HYDROCODONE BITARTRATE
     Indication: COUGH
     Dosage: 5 MG, AS REQUIRED
     Route: 048
     Dates: start: 20170309
  37. TYLENOL [Concomitant]
     Active Substance: ACETAMINOPHEN
     Indication: PYREXIA
     Dosage: 650 MG, ONCE
     Route: 048
     Dates: start: 20170622
  38. WELLBUTRIN SR [Concomitant]
     Active Substance: BUPROPION HYDROCHLORIDE
     Indication: DEPRESSION
     Dosage: 150 MG, 1 IN 1 D
     Route: 048
     Dates: start: 199801
  39. HYDROXYCHLOROQUINE [Concomitant]
     Active Substance: HYDROXYCHLOROQUINE
     Indication: SYSTEMIC LUPUS ERYTHEMATOSUS
     Dosage: 400 MG, 1 IN 1 D
     Route: 048
     Dates: start: 201501
  40. HYDROXYCHLOROQUINE [Concomitant]
     Active Substance: HYDROXYCHLOROQUINE
     Dosage: 200 MG, 1 IN 1 D
     Route: 048
     Dates: start: 20170715
  41. HYDROCORTISONE. [Concomitant]
     Active Substance: HYDROCORTISONE
     Indication: NEOPLASM
  42. BEN GAY [Concomitant]
     Indication: ARTHRALGIA
     Dosage: 3 DOSAGE FORMS (1 DOSAGE FORMS, 3 IN 1 D)
     Route: 061
     Dates: start: 20171123
  43. TYLENOL [Concomitant]
     Active Substance: ACETAMINOPHEN
     Indication: ARTHRALGIA
  44. OXYCODONE [Concomitant]
     Active Substance: OXYCODONE
     Indication: PAIN
  45. ZOFRAN [Concomitant]
     Active Substance: ONDANSETRON HYDROCHLORIDE
     Indication: NAUSEA
     Dosage: 4 MG, AS REQUIRED
     Route: 048
     Dates: start: 20170319
  46. MELATONIN [Concomitant]
     Active Substance: MELATONIN
     Indication: INSOMNIA
     Dosage: QHS (3 MG,1 IN 1 D)
     Route: 048
     Dates: start: 20170817
  47. PROCHLORPERAZINE. [Concomitant]
     Active Substance: PROCHLORPERAZINE
     Indication: PNEUMONIA
     Dosage: 10 MG, Q6H PRN (10 MG, AS REQUIRED)
     Route: 048
     Dates: start: 20170309
  48. NORMAL SALINE SOLUTION [Concomitant]
     Indication: PROPHYLAXIS
     Dosage: CYCLICAL
     Route: 042
     Dates: start: 20170303
  49. NORMAL SALINE SOLUTION [Concomitant]
     Indication: PROPHYLAXIS
  50. LITHIUM. [Concomitant]
     Active Substance: LITHIUM
     Dosage: 600 MG, 1 IN 1 D
     Route: 048
     Dates: start: 201501
  51. VIGRAN [Concomitant]
     Active Substance: VITAMINS
     Indication: VITAMIN SUPPLEMENTATION
     Dosage: 1 TABLET,1 IN 1 D
     Route: 048
     Dates: start: 201501
  52. FLAGYL [Concomitant]
     Active Substance: METRONIDAZOLE\METRONIDAZOLE HYDROCHLORIDE
     Indication: DIVERTICULITIS
     Dosage: 500 MG, 2 IN 1 D
     Route: 048
     Dates: start: 20180225

REACTIONS (1)
  - Pneumonia [Not Recovered/Not Resolved]

NARRATIVE: CASE EVENT DATE: 20180220
